FAERS Safety Report 12508821 (Version 2)
Quarter: 2016Q3

REPORT INFORMATION
  Report Type: Spontaneous
  Country: US (occurrence: US)
  Receive Date: 20160629
  Receipt Date: 20160711
  Transmission Date: 20161109
  Serious: Yes (Hospitalization)
  Sender: FDA-Public Use
  Company Number: US-VERTEX PHARMACEUTICALS-2016-004005

PATIENT
  Age: 15 Year
  Sex: Female

DRUGS (6)
  1. LORATADINE. [Concomitant]
     Active Substance: LORATADINE
  2. ORKAMBI [Suspect]
     Active Substance: IVACAFTOR\LUMACAFTOR
     Indication: CYSTIC FIBROSIS
     Dosage: 2 DF(400-250 MG), BID
     Route: 048
     Dates: start: 201510
  3. VITAMIN D [Concomitant]
     Active Substance: CHOLECALCIFEROL
  4. ZENTEL [Concomitant]
     Active Substance: ALBENDAZOLE
  5. PULMOZYME [Concomitant]
     Active Substance: DORNASE ALFA
  6. RANITIDINE. [Concomitant]
     Active Substance: RANITIDINE

REACTIONS (1)
  - Increased bronchial secretion [Unknown]
